FAERS Safety Report 6687971-8 (Version None)
Quarter: 2010Q2

REPORT INFORMATION
  Report Type: 
  Country: None (occurrence: None)
  Receive Date: 20100420
  Receipt Date: 20100412
  Transmission Date: 20101027
  Serious: Yes (Hospitalization, Other)
  Sender: FDA-Public Use
  Company Number: US-ASTRAZENECA-2007UW01948

PATIENT
  Age: 12433 Day
  Sex: Female
  Weight: 98.9 kg

DRUGS (30)
  1. SEROQUEL [Suspect]
     Indication: SLEEP DISORDER
     Dosage: 25-100 MG
     Route: 048
     Dates: start: 20020222, end: 20040716
  2. SEROQUEL [Suspect]
     Route: 048
     Dates: start: 20020607
  3. ZYPREXA [Concomitant]
     Dates: start: 20020213
  4. EFFEXOR [Concomitant]
  5. VALPROIC ACID [Concomitant]
  6. ASACOL [Concomitant]
     Dates: start: 19990114
  7. DEPO-PROVERA [Concomitant]
  8. REMERON [Concomitant]
  9. DEPAKOTE [Concomitant]
  10. PAXIL [Concomitant]
  11. LEXAPRO [Concomitant]
  12. NEXIUM [Concomitant]
     Dates: start: 20040310
  13. TORADOL [Concomitant]
  14. CIPRO [Concomitant]
  15. AUGMENTIN '125' [Concomitant]
  16. ZOFRAN [Concomitant]
  17. DILAUDID [Concomitant]
  18. FLAGYL [Concomitant]
  19. SOLU-MEDROL [Concomitant]
  20. PROTONIX [Concomitant]
  21. CHOLESTYRAMINE [Concomitant]
  22. WELLBUTRIN [Concomitant]
  23. ATIVAN [Concomitant]
  24. PREDNISONE [Concomitant]
     Dosage: 15 MG TO 40 MG
     Route: 048
     Dates: start: 19961121
  25. DOXYCYCLINE [Concomitant]
  26. HYDROCODONE BITARTRATE AND ACETAMINOPHEN [Concomitant]
  27. TOPAMAX [Concomitant]
  28. TRILAFON [Concomitant]
     Dates: start: 19970316
  29. COGENTIN [Concomitant]
     Dates: start: 19970316
  30. ZOLOFT [Concomitant]
     Dates: start: 19970316

REACTIONS (21)
  - ABDOMINAL PAIN [None]
  - ABSCESS [None]
  - ANAEMIA [None]
  - CLOSTRIDIUM DIFFICILE COLITIS [None]
  - COLITIS ULCERATIVE [None]
  - CONSTIPATION [None]
  - DEHYDRATION [None]
  - DEPRESSION [None]
  - DIABETES MELLITUS [None]
  - GASTROINTESTINAL HAEMORRHAGE [None]
  - HEADACHE [None]
  - HYPERVENTILATION [None]
  - MAJOR DEPRESSION [None]
  - OVARIAN CYST [None]
  - PELVIC PAIN [None]
  - PYELONEPHRITIS [None]
  - PYODERMA GANGRENOSUM [None]
  - SUICIDAL IDEATION [None]
  - URINARY TRACT INFECTION [None]
  - UTERINE LEIOMYOMA [None]
  - WEIGHT INCREASED [None]
